FAERS Safety Report 4584759-9 (Version None)
Quarter: 2005Q1

REPORT INFORMATION
  Report Type: 
  Country: None (occurrence: None)
  Receive Date: 20050214
  Receipt Date: 20050201
  Transmission Date: 20050727
  Serious: Yes (Hospitalization, Other)
  Sender: FDA-Public Use
  Company Number: 2005024685

PATIENT
  Age: 86 Year
  Sex: Female
  Weight: 59.8748 kg

DRUGS (3)
  1. CELEBREX [Suspect]
     Indication: ARTHRITIS
     Dates: end: 20040101
  2. DIGOXIN [Suspect]
     Indication: CARDIAC DISORDER
     Dates: start: 20040101, end: 20040101
  3. POTASSIUM CHLORIDE [Concomitant]

REACTIONS (9)
  - BODY HEIGHT DECREASED [None]
  - CARDIAC DISORDER [None]
  - CYSTITIS [None]
  - GASTRIC HAEMORRHAGE [None]
  - GASTRITIS EROSIVE [None]
  - SPINAL DISORDER [None]
  - URINARY TRACT DISORDER [None]
  - VOMITING [None]
  - WEIGHT INCREASED [None]
